FAERS Safety Report 9541898 (Version 1)
Quarter: 2013Q3

REPORT INFORMATION
  Report Type: Spontaneous
  Country: US (occurrence: None)
  Receive Date: 20130919
  Receipt Date: 20130919
  Transmission Date: 20140515
  Serious: Yes (Disabling)
  Sender: FDA-Public Use
  Company Number: None

PATIENT
  Age: 50 Year
  Sex: Male
  Weight: 74.84 kg

DRUGS (4)
  1. LISINOPRIL [Suspect]
     Indication: HYPERTENSION
     Route: 048
     Dates: start: 201003, end: 201105
  2. LISINOPRIL [Suspect]
     Indication: CARDIAC DISORDER
     Route: 048
     Dates: start: 201003, end: 201105
  3. METOPROLOL TARTRATE [Suspect]
     Route: 048
  4. MULTIVITAMIN AND CALCIUM [Concomitant]

REACTIONS (7)
  - Dizziness [None]
  - Feeling abnormal [None]
  - Balance disorder [None]
  - Hypoglycaemia [None]
  - Impaired work ability [None]
  - Insomnia [None]
  - Adverse drug reaction [None]
